FAERS Safety Report 5496597-3 (Version None)
Quarter: 2007Q4

REPORT INFORMATION
  Report Type: 
  Country: None (occurrence: None)
  Receive Date: 20071023
  Receipt Date: 20071023
  Transmission Date: 20080405
  Serious: No
  Sender: FDA-Public Use
  Company Number: None

PATIENT
  Age: 41 Year
  Sex: Female
  Weight: 60.3284 kg

DRUGS (1)
  1. AMOXICILLIN + CLAVULANATE POTASSIUM 875MG/125MG SANDOZ [Suspect]
     Dosage: 20 TABLETS 1 TAB, TWICE DAILY PO
     Route: 048

REACTIONS (2)
  - MEDICATION ERROR [None]
  - PHARMACEUTICAL PRODUCT COMPLAINT [None]
